FAERS Safety Report 25846566 (Version 1)
Quarter: 2025Q3

REPORT INFORMATION
  Report Type: Other
  Country: US (occurrence: US)
  Receive Date: 20250925
  Receipt Date: 20250925
  Transmission Date: 20251020
  Serious: Yes (Hospitalization, Disabling, Other)
  Sender: ALVOGEN
  Company Number: US-ALVOGEN-2025098735

PATIENT
  Sex: Male

DRUGS (6)
  1. DISULFIRAM [Suspect]
     Active Substance: DISULFIRAM
     Indication: Brain stem glioma
  2. DISULFIRAM [Suspect]
     Active Substance: DISULFIRAM
     Indication: Brain stem glioma
  3. DISULFIRAM [Suspect]
     Active Substance: DISULFIRAM
     Indication: Brain stem glioma
  4. DISULFIRAM [Suspect]
     Active Substance: DISULFIRAM
     Indication: Brain stem glioma
  5. DORDAVIPRONE [Concomitant]
     Active Substance: DORDAVIPRONE
     Indication: Brain stem glioma
  6. DORDAVIPRONE [Concomitant]
     Active Substance: DORDAVIPRONE
     Indication: Brain stem glioma

REACTIONS (4)
  - Peroneal nerve palsy [Not Recovered/Not Resolved]
  - Neuropathy peripheral [Recovered/Resolved]
  - Therapeutic response unexpected [Unknown]
  - Off label use [Unknown]
